FAERS Safety Report 19669072 (Version 1)
Quarter: 2021Q3

REPORT INFORMATION
  Report Type: Spontaneous
  Country: US (occurrence: US)
  Receive Date: 20210806
  Receipt Date: 20210806
  Transmission Date: 20211014
  Serious: Yes (Other)
  Sender: FDA-Public Use
  Company Number: US-UPSHER-SMITH LABORATORIES, LLC-2021USL00501

PATIENT
  Sex: Male
  Weight: 104.31 kg

DRUGS (18)
  1. AMIODARONE HYDROCHLORIDE. [Suspect]
     Active Substance: AMIODARONE HYDROCHLORIDE
     Indication: LUNG DISORDER
     Dosage: 200 MG, 1X/DAY
     Dates: start: 200201, end: 2021
  2. METOPROLOL. [Suspect]
     Active Substance: METOPROLOL
     Dosage: 50 MG, 1X/DAY
  3. UNSPECIFIED MEDICINES [Suspect]
     Active Substance: UNSPECIFIED INGREDIENT
  4. FINASTERIDE. [Concomitant]
     Active Substance: FINASTERIDE
     Dosage: UNK
     Dates: start: 202101
  5. METFORMIN [Concomitant]
     Active Substance: METFORMIN HYDROCHLORIDE
  6. ELIQUIS [Concomitant]
     Active Substance: APIXABAN
  7. VITAMIN C [Concomitant]
     Active Substance: ASCORBIC ACID
  8. POTASSIUM [Concomitant]
     Active Substance: POTASSIUM
     Dosage: A LOT
  9. VITAMIN D [Concomitant]
     Active Substance: VITAMIN D NOS
  10. ZINC. [Concomitant]
     Active Substance: ZINC
  11. AMIODARONE HYDROCHLORIDE. [Suspect]
     Active Substance: AMIODARONE HYDROCHLORIDE
     Indication: DYSPNOEA
     Dosage: 200 MG, 1X/DAY
     Dates: start: 202102, end: 202107
  12. LASIX [Concomitant]
     Active Substance: FUROSEMIDE
     Dosage: 60 UNK, 2X/DAY
  13. METOPROLOL. [Suspect]
     Active Substance: METOPROLOL
     Dosage: 100 MG, 1X/DAY
  14. VITAMIN B COMPLEX [Concomitant]
     Active Substance: CYANOCOBALAMIN\DEXPANTHENOL\NIACINAMIDE\PYRIDOXINE HYDROCHLORIDE\RIBOFLAVIN 5^-PHOSPHATE SODIUM\THIAMINE HYDROCHLORIDE\VITAMIN B COMPLEX
  15. TAMSULOSIN [Concomitant]
     Active Substance: TAMSULOSIN
  16. GLUCOSAMINE [Concomitant]
     Active Substance: GLUCOSAMINE
     Dosage: A LOT
  17. GLIPIZIDE. [Concomitant]
     Active Substance: GLIPIZIDE
  18. CARBIDOPA/LEVODOPA [Concomitant]
     Active Substance: CARBIDOPA\LEVODOPA

REACTIONS (9)
  - Abdominal pain lower [Not Recovered/Not Resolved]
  - Dizziness [Unknown]
  - Fatigue [Recovered/Resolved]
  - Insomnia [Unknown]
  - Dyspnoea [Not Recovered/Not Resolved]
  - Pneumonia [Unknown]
  - Product dose omission issue [Recovered/Resolved]
  - Chest discomfort [Not Recovered/Not Resolved]
  - Nausea [Not Recovered/Not Resolved]

NARRATIVE: CASE EVENT DATE: 2021
